FAERS Safety Report 8511060-0 (Version None)
Quarter: 2012Q3

REPORT INFORMATION
  Report Type: 
  Country: None (occurrence: None)
  Receive Date: 20120716
  Receipt Date: 20120710
  Transmission Date: 20120928
  Serious: Yes (Hospitalization)
  Sender: FDA-Public Use
  Company Number: US-BAYER-2011-103497

PATIENT
  Age: 35 Year
  Sex: Female
  Weight: 100.8 kg

DRUGS (6)
  1. YAZ [Suspect]
     Dosage: UNK
     Route: 048
     Dates: start: 20080601, end: 20090901
  2. LOESTRIN 1.5/30 [Concomitant]
     Dosage: 20 MCG/24HR, HS
  3. AMOXICILLIN [Concomitant]
     Dosage: UNK
     Dates: start: 20091103
  4. ASTEPRO [Concomitant]
     Dosage: UNK
     Dates: start: 20091103
  5. NASACORT [Concomitant]
     Dosage: UNK
     Dates: start: 20091103
  6. DEPO-MEDROL [Concomitant]
     Dosage: UNK
     Dates: start: 20091103

REACTIONS (6)
  - GENERAL PHYSICAL HEALTH DETERIORATION [None]
  - PAIN [None]
  - ANHEDONIA [None]
  - ANXIETY [None]
  - EMOTIONAL DISTRESS [None]
  - CEREBROVASCULAR ACCIDENT [None]
